FAERS Safety Report 25576233 (Version 1)
Quarter: 2025Q3

REPORT INFORMATION
  Report Type: Spontaneous
  Country: EU (occurrence: EU)
  Receive Date: 20250718
  Receipt Date: 20250718
  Transmission Date: 20251020
  Serious: Yes (Hospitalization)
  Sender: Atnahs Healthcare
  Company Number: None

PATIENT
  Age: 57 Year
  Sex: Female

DRUGS (3)
  1. DIAZEPAM [Suspect]
     Active Substance: DIAZEPAM
     Indication: Schizophrenia
     Dosage: 40 MILLIGRAM, 1X/DAY
  2. ZUCLOPENTHIXOL ACETATE [Suspect]
     Active Substance: ZUCLOPENTHIXOL ACETATE
     Indication: Schizophrenia
     Dosage: 200 MILLIGRAM, 1X/DAY
  3. LOXAPINE [Suspect]
     Active Substance: LOXAPINE
     Indication: Schizophrenia
     Dosage: 400 MILLIGRAM, 1X/DAY

REACTIONS (2)
  - Hypothermia [Recovered/Resolved]
  - Respiratory distress [Recovering/Resolving]
